FAERS Safety Report 23484863 (Version 2)
Quarter: 2024Q4

REPORT INFORMATION
  Report Type: Spontaneous
  Country: FR (occurrence: FR)
  Receive Date: 20240206
  Receipt Date: 20241129
  Transmission Date: 20250115
  Serious: Yes (Other)
  Sender: TEVA
  Company Number: None

PATIENT
  Age: 49 Year
  Sex: Female

DRUGS (7)
  1. CLARITHROMYCIN [Suspect]
     Active Substance: CLARITHROMYCIN
     Indication: Infection
     Route: 048
     Dates: start: 202211, end: 202211
  2. BILASTINE [Suspect]
     Active Substance: BILASTINE
     Indication: Rhinitis allergic
     Route: 048
     Dates: start: 202211, end: 202211
  3. AMYLMETACRESOL\DICHLOROBENZYL ALCOHOL\LIDOCAINE [Suspect]
     Active Substance: AMYLMETACRESOL\DICHLOROBENZYL ALCOHOL\LIDOCAINE
     Indication: Oropharyngeal pain
     Dosage: HUMEX SORE THROAT LIDOCAINE/DICHLOROBENZYL ALCOHOL/AMYLMETACRESOL 2 MG/1.2 MG/0.6 MG HONEY LEMON.
     Route: 048
     Dates: start: 202211, end: 202211
  4. OXOMEMAZINE [Suspect]
     Active Substance: OXOMEMAZINE
     Indication: Cough
     Route: 048
     Dates: start: 202211, end: 202211
  5. DOLIPRANE [Concomitant]
     Active Substance: ACETAMINOPHEN
     Indication: Product used for unknown indication
     Route: 048
     Dates: start: 202211, end: 202211
  6. MOVICOL [Concomitant]
     Active Substance: POLYETHYLENE GLYCOL 3350\POTASSIUM CHLORIDE\SODIUM BICARBONATE\SODIUM CHLORIDE
     Indication: Product used for unknown indication
     Route: 048
     Dates: start: 202211, end: 202211
  7. ACETYLCYSTEINE [Suspect]
     Active Substance: ACETYLCYSTEINE
     Indication: Bronchitis
     Route: 048
     Dates: start: 202211, end: 202211

REACTIONS (1)
  - Fixed eruption [Recovered/Resolved]

NARRATIVE: CASE EVENT DATE: 20221104
